FAERS Safety Report 4778450-3 (Version None)
Quarter: 2005Q3

REPORT INFORMATION
  Report Type: 
  Country: None (occurrence: None)
  Receive Date: 20050923
  Receipt Date: 20050923
  Transmission Date: 20060218
  Serious: Yes (Other)
  Sender: FDA-Public Use
  Company Number: None

PATIENT
  Age: 80 Year
  Sex: Male
  Weight: 80.7 kg

DRUGS (14)
  1. PRAZOSIN [Suspect]
  2. COUMADIN [Concomitant]
  3. FLUOCINOLONE ACETONIDE [Concomitant]
  4. FLUOCINONIDE [Concomitant]
  5. MECLIZINE HCL [Concomitant]
  6. SULFAMETHOXAZOLE + TRIMETHOPRIM [Concomitant]
  7. ISOSORBIDE DINITRATE [Concomitant]
  8. NITROGLYCERIN [Concomitant]
  9. ASPIRIN [Concomitant]
  10. METOPROLOL TARTRATE [Concomitant]
  11. PENTOXIFYLLINE [Concomitant]
  12. FINASTERIDE [Concomitant]
  13. FUROSEMIDE [Concomitant]
  14. OMEPRAZOLE [Concomitant]

REACTIONS (1)
  - DIZZINESS [None]
